FAERS Safety Report 20056101 (Version 1)
Quarter: 2021Q4

REPORT INFORMATION
  Report Type: Spontaneous
  Country: IS (occurrence: IS)
  Receive Date: 20211111
  Receipt Date: 20211111
  Transmission Date: 20220303
  Serious: Yes (Hospitalization, Other)
  Sender: FDA-Public Use
  Company Number: IS-BoehringerIngelheim-2021-BI-136814

PATIENT
  Age: 81 Year
  Sex: Male

DRUGS (1)
  1. PRADAXA [Suspect]
     Active Substance: DABIGATRAN ETEXILATE MESYLATE
     Indication: Product used for unknown indication
     Dates: end: 20211023

REACTIONS (3)
  - Procedural haemorrhage [Recovered/Resolved]
  - Haemarthrosis [Recovered/Resolved]
  - Haematinuria [Recovered/Resolved]

NARRATIVE: CASE EVENT DATE: 20211010
